FAERS Safety Report 13502467 (Version 1)
Quarter: 2017Q2

REPORT INFORMATION
  Report Type: Spontaneous
  Country: US (occurrence: US)
  Receive Date: 20170502
  Receipt Date: 20170502
  Transmission Date: 20170830
  Serious: Yes (Hospitalization, Other)
  Sender: FDA-Public Use
  Company Number: US-TEVA-764069USA

PATIENT
  Age: 42 Year
  Sex: Female

DRUGS (3)
  1. OSELTAMIVIR [Concomitant]
     Active Substance: OSELTAMIVIR
     Indication: INFLUENZA
     Route: 065
  2. WARFARIN [Suspect]
     Active Substance: WARFARIN
     Indication: PULMONARY EMBOLISM
     Route: 065
  3. VANCOMYCIN, CEFEPIME [Concomitant]
     Indication: CLOSTRIDIUM DIFFICILE INFECTION
     Route: 065

REACTIONS (3)
  - Abdominal wall haematoma [Recovered/Resolved]
  - Acute kidney injury [Recovered/Resolved]
  - Obstructive uropathy [Recovered/Resolved]
